FAERS Safety Report 5070022-9 (Version None)
Quarter: 2006Q3

REPORT INFORMATION
  Report Type: 
  Country: None (occurrence: None)
  Receive Date: 20060803
  Receipt Date: 20060725
  Transmission Date: 20061208
  Serious: Yes (Hospitalization, Disabling)
  Sender: FDA-Public Use
  Company Number: 2006UW15110

PATIENT
  Age: 46 Year
  Sex: Female

DRUGS (4)
  1. SEROQUEL [Suspect]
     Indication: SLEEP DISORDER THERAPY
     Dosage: 300 OR 600 MG
     Route: 048
     Dates: start: 20030528
  2. ABILIFY [Suspect]
     Dates: start: 20031105
  3. EFFEXOR XR [Concomitant]
     Route: 048
  4. PROVIGIL [Concomitant]

REACTIONS (2)
  - CARDIAC DISORDER [None]
  - DYSKINESIA [None]
